FAERS Safety Report 4592707-0 (Version None)
Quarter: 2005Q1

REPORT INFORMATION
  Report Type: 
  Country: None (occurrence: None)
  Receive Date: 20050222
  Receipt Date: 20050209
  Transmission Date: 20050727
  Serious: Yes (Hospitalization)
  Sender: FDA-Public Use
  Company Number: 2005028618

PATIENT
  Age: 11 Year
  Sex: Female
  Weight: 24.4942 kg

DRUGS (4)
  1. ZITHROMAX [Suspect]
     Indication: PHARYNGOTONSILLITIS
     Dosage: 250 MG (UNK), ORAL
     Route: 048
     Dates: start: 20050131
  2. IBUPROFEN [Concomitant]
  3. ACETYLCYSTEINE [Concomitant]
  4. ANASTIL                     (CALCIUM LACTATE, GUAIACOL) [Concomitant]

REACTIONS (5)
  - AGRANULOCYTOSIS [None]
  - DELUSION [None]
  - HALLUCINATION, AUDITORY [None]
  - PSYCHOTIC DISORDER [None]
  - RESTLESSNESS [None]
